FAERS Safety Report 25015842 (Version 1)
Quarter: 2025Q1

REPORT INFORMATION
  Report Type: Spontaneous
  Country: US (occurrence: US)
  Receive Date: 20250227
  Receipt Date: 20250227
  Transmission Date: 20250409
  Serious: Yes (Hospitalization)
  Sender: TEVA
  Company Number: US-TEVA-VS-3301611

PATIENT
  Age: 76 Year
  Sex: Female

DRUGS (2)
  1. LEVOTHYROXINE [Suspect]
     Active Substance: LEVOTHYROXINE
     Indication: Product used for unknown indication
     Route: 065
  2. LENVIMA [Suspect]
     Active Substance: LENVATINIB
     Indication: Product used for unknown indication
     Route: 065
     Dates: start: 20241219

REACTIONS (4)
  - Dyspnoea [Recovering/Resolving]
  - Eating disorder [Recovering/Resolving]
  - Mobility decreased [Recovering/Resolving]
  - Asthenia [Recovering/Resolving]
